FAERS Safety Report 7577180-2 (Version None)
Quarter: 2011Q2

REPORT INFORMATION
  Report Type: 
  Country: None (occurrence: None)
  Receive Date: 20110525
  Receipt Date: 20110329
  Transmission Date: 20111010
  Serious: No
  Sender: FDA-Public Use
  Company Number: 325830

PATIENT
  Age: 46 Year
  Sex: Female

DRUGS (3)
  1. VICTOZA [Suspect]
     Indication: TYPE 2 DIABETES MELLITUS
     Dosage: SUBCUTANEOUS
     Route: 058
     Dates: start: 20110325
  2. CLONIDINE [Concomitant]
  3. METFORMIN HCL [Concomitant]

REACTIONS (2)
  - DIZZINESS [None]
  - NAUSEA [None]
